FAERS Safety Report 5339511-3 (Version None)
Quarter: 2007Q2

REPORT INFORMATION
  Report Type: 
  Country: None (occurrence: None)
  Receive Date: 20070522
  Receipt Date: 20070508
  Transmission Date: 20071010
  Serious: Yes (Other)
  Sender: FDA-Public Use
  Company Number: B0471178A

PATIENT
  Age: 47 Year
  Sex: Female

DRUGS (1)
  1. BECONASE [Suspect]
     Indication: ASTHMA
     Dosage: 2 PUFF (S) / TWICE PER DAY/ INHALED
     Route: 055
     Dates: start: 19990101

REACTIONS (4)
  - GAIT DISTURBANCE [None]
  - LOWER LIMB DEFORMITY [None]
  - OSTEONECROSIS [None]
  - UNEQUAL LIMB LENGTH [None]
